FAERS Safety Report 7753282-2 (Version None)
Quarter: 2011Q3

REPORT INFORMATION
  Report Type: 
  Country: None (occurrence: None)
  Receive Date: 20110915
  Receipt Date: 20110908
  Transmission Date: 20111222
  Serious: Yes (Hospitalization)
  Sender: FDA-Public Use
  Company Number: DE-ROCHE-724378

PATIENT
  Sex: Male
  Weight: 72 kg

DRUGS (11)
  1. BEVACIZUMAB [Suspect]
     Route: 042
     Dates: start: 20100820
  2. FOLIC ACID [Concomitant]
     Indication: PROPHYLAXIS
     Dates: start: 20100417
  3. CALCILAC KT [Concomitant]
     Dates: start: 20100429
  4. PEMETREXED [Suspect]
     Indication: NON-SMALL CELL LUNG CANCER
     Dosage: THERAPY WITHHELD. LAST DOSE PRIOR TO SAE: 28 JULY 2010, FORM:VIAL.
     Route: 042
     Dates: start: 20100424, end: 20100818
  5. PEMETREXED [Suspect]
     Route: 042
     Dates: start: 20100820
  6. CISPLATIN [Suspect]
     Indication: NON-SMALL CELL LUNG CANCER
     Dosage: LAST DOSE PRIOR TO SAE: 28 JULY 2010.
     Route: 042
     Dates: start: 20100424
  7. ZOPICLONE [Concomitant]
     Indication: INSOMNIA
     Dates: start: 20100614
  8. KALINOR [Concomitant]
     Dates: start: 20100727
  9. DEXAMETHASONE [Concomitant]
     Indication: PROPHYLAXIS
     Dates: start: 20100423
  10. BEVACIZUMAB [Suspect]
     Indication: NON-SMALL CELL LUNG CANCER
     Dosage: THERAPY WITHHELD. LAST DOSE PRIOR TO SAE: 28 JULY 2010.
     Route: 042
     Dates: start: 20100424, end: 20100818
  11. CYANOCOBALAMIN [Concomitant]
     Indication: PROPHYLAXIS
     Dosage: DRUG NAME REPORTED AS: VITAMIN B 12.
     Dates: start: 20100416

REACTIONS (2)
  - NAUSEA [None]
  - VERTIGO [None]
